FAERS Safety Report 8248345-1 (Version None)
Quarter: 2012Q1

REPORT INFORMATION
  Report Type: 
  Country: None (occurrence: None)
  Receive Date: 20120330
  Receipt Date: 20120315
  Transmission Date: 20120608
  Serious: Yes (Hospitalization)
  Sender: FDA-Public Use
  Company Number: US-WATSON-2012-04152

PATIENT
  Age: 61 Year
  Sex: Female

DRUGS (2)
  1. BACLOFEN [Suspect]
     Indication: BACK PAIN
     Dosage: 5 MG, TID
     Route: 048
  2. BACLOFEN [Suspect]
     Indication: MUSCLE SPASMS

REACTIONS (4)
  - DISORIENTATION [None]
  - NEUROTOXICITY [None]
  - DEPRESSED LEVEL OF CONSCIOUSNESS [None]
  - TOXICITY TO VARIOUS AGENTS [None]
